FAERS Safety Report 5215175-4 (Version None)
Quarter: 2007Q1

REPORT INFORMATION
  Report Type: 
  Country: None (occurrence: None)
  Receive Date: 20061108
  Receipt Date: 20060525
  Transmission Date: 20070707
  Serious: Yes (Other)
  Sender: FDA-Public Use
  Company Number: US200605005783

PATIENT
  Age: 16 Year
  Sex: Female

DRUGS (1)
  1. PROZAC [Suspect]
     Dosage: 10 MG DAILY (1/D), ORAL
     Route: 048
     Dates: start: 20060301

REACTIONS (2)
  - DIARRHOEA [None]
  - RECTAL HAEMORRHAGE [None]
